FAERS Safety Report 14695514 (Version 1)
Quarter: 2018Q1

REPORT INFORMATION
  Report Type: Spontaneous
  Country: US (occurrence: US)
  Receive Date: 20180327
  Receipt Date: 20180327
  Transmission Date: 20180509
  Serious: No
  Sender: FDA-Public Use
  Company Number: None

PATIENT
  Age: 60 Year
  Sex: Female

DRUGS (8)
  1. MAGIC MOUTHWASH [Concomitant]
     Active Substance: DIPHENHYDRAMINE HYDROCHLORIDE\LIDOCAINE HYDROCHLORIDE\NYSTATIN
  2. HYDROMORPHONE [Concomitant]
     Active Substance: HYDROMORPHONE
     Dosage: EVERY 4 HOURS PRN
     Route: 042
  3. LANSOPRAZOLE. [Concomitant]
     Active Substance: LANSOPRAZOLE
  4. OXYCODONE [Suspect]
     Active Substance: OXYCODONE
     Indication: PAIN
     Dosage: EVERY 4 HOURS PRN
     Route: 048
     Dates: start: 20180108
  5. CLINDAMYCIN. [Concomitant]
     Active Substance: CLINDAMYCIN
  6. IBUPROFEN. [Concomitant]
     Active Substance: IBUPROFEN
  7. NYSTATIN. [Concomitant]
     Active Substance: NYSTATIN
  8. PHENOL. [Concomitant]
     Active Substance: PHENOL

REACTIONS (4)
  - Renal impairment [None]
  - Apnoea [None]
  - Liver disorder [None]
  - Respiratory disorder [None]

NARRATIVE: CASE EVENT DATE: 20180110
